FAERS Safety Report 12885507 (Version 1)
Quarter: 2016Q4

REPORT INFORMATION
  Report Type: Spontaneous
  Country: US (occurrence: US)
  Receive Date: 20161026
  Receipt Date: 20161026
  Transmission Date: 20170207
  Serious: No
  Sender: FDA-Public Use
  Company Number: US-PFIZER INC-3152674

PATIENT

DRUGS (2)
  1. VANCOMYCIN HCL [Suspect]
     Active Substance: VANCOMYCIN HYDROCHLORIDE
     Indication: PRODUCT USED FOR UNKNOWN INDICATION
     Dosage: UNK
     Dates: start: 20160124
  2. WATER BACTERIOSTATIC [Suspect]
     Active Substance: WATER
     Indication: MEDICATION DILUTION
     Dosage: UNK
     Dates: start: 20160124

REACTIONS (2)
  - Wrong drug administered [Recovered/Resolved]
  - Product preparation error [Recovered/Resolved]

NARRATIVE: CASE EVENT DATE: 20160124
